FAERS Safety Report 7209585-3 (Version None)
Quarter: 2011Q1

REPORT INFORMATION
  Report Type: 
  Country: None (occurrence: None)
  Receive Date: 20110104
  Receipt Date: 20101220
  Transmission Date: 20110831
  Serious: Yes (Hospitalization)
  Sender: FDA-Public Use
  Company Number: JP-PFIZER INC-2010181114

PATIENT
  Age: 64 Year
  Sex: Male

DRUGS (3)
  1. NORVASC [Suspect]
     Dosage: 5 MG, DAILY
     Route: 048
     Dates: start: 20100619, end: 20100907
  2. CARDENALIN [Concomitant]
     Indication: ESSENTIAL HYPERTENSION
     Dosage: 2 MG, 1X/DAY
     Route: 048
     Dates: start: 20100619, end: 20100731
  3. OLMESARTAN MEDOXOMIL [Suspect]
     Indication: ESSENTIAL HYPERTENSION
     Dosage: 10 MG, 1X/DAY
     Route: 048
     Dates: start: 20100619, end: 20100831

REACTIONS (3)
  - LACUNAR INFARCTION [None]
  - ORTHOSTATIC HYPOTENSION [None]
  - BLOOD PRESSURE DECREASED [None]
